FAERS Safety Report 13615332 (Version 1)
Quarter: 2017Q2

REPORT INFORMATION
  Report Type: Spontaneous
  Country: US (occurrence: US)
  Receive Date: 20170605
  Receipt Date: 20170605
  Transmission Date: 20170830
  Serious: Yes (Other)
  Sender: FDA-Public Use
  Company Number: None

PATIENT
  Age: 30 Year
  Sex: Female
  Weight: 72 kg

DRUGS (4)
  1. MIBELAS 24 FE [Suspect]
     Active Substance: ETHINYL ESTRADIOL\NORETHINDRONE ACETATE
     Indication: CONTRACEPTION
     Dosage: ?          QUANTITY:28 TABLET(S);?
     Route: 048
     Dates: start: 20170509, end: 20170605
  2. NATURE MADE MULTI VITAMIN [Concomitant]
  3. ACZONE [Concomitant]
     Active Substance: DAPSONE
  4. ACANYA [Concomitant]
     Active Substance: BENZOYL PEROXIDE\CLINDAMYCIN PHOSPHATE

REACTIONS (4)
  - Product quality issue [None]
  - Muscle spasms [None]
  - Product use issue [None]
  - Menorrhagia [None]

NARRATIVE: CASE EVENT DATE: 20170509
